FAERS Safety Report 21493855 (Version 2)
Quarter: 2023Q2

REPORT INFORMATION
  Report Type: Report from Study
  Country: IN (occurrence: IN)
  Receive Date: 20221021
  Receipt Date: 20230402
  Transmission Date: 20230721
  Serious: Yes (Other)
  Sender: FDA-Public Use
  Company Number: IN-NOVARTISPH-NVSC2020IN362833

PATIENT
  Age: 63 Year
  Sex: Female

DRUGS (1)
  1. RIBOCICLIB [Suspect]
     Active Substance: RIBOCICLIB
     Indication: Breast cancer
     Dosage: 600 MG, QD
     Route: 048
     Dates: start: 20200122

REACTIONS (4)
  - Intraductal proliferative breast lesion [Not Recovered/Not Resolved]
  - Soft tissue swelling [Not Recovered/Not Resolved]
  - Bone lesion [Not Recovered/Not Resolved]
  - Cough [Recovered/Resolved]

NARRATIVE: CASE EVENT DATE: 20220912
